FAERS Safety Report 9474828 (Version 3)
Quarter: 2013Q4

REPORT INFORMATION
  Report Type: Report from Study
  Country: ES (occurrence: ES)
  Receive Date: 20130823
  Receipt Date: 20131009
  Transmission Date: 20140711
  Serious: Yes (Hospitalization, Other)
  Sender: FDA-Public Use
  Company Number: PHHO2013ES009988

PATIENT
  Sex: 0

DRUGS (10)
  1. EXEMESTANE [Suspect]
     Indication: BREAST CANCER METASTATIC
     Dosage: 25 MG, QD
     Route: 048
     Dates: start: 20130530, end: 20130725
  2. AFINITOR [Suspect]
     Indication: BREAST CANCER METASTATIC
     Dosage: 5 MG, QD
     Route: 048
     Dates: start: 20130530, end: 20130725
  3. ATENOLOL [Suspect]
     Indication: HYPERTENSION
     Dosage: 50 MG, Q12H
     Route: 048
     Dates: end: 20130725
  4. ATENOLOL [Suspect]
     Dosage: UNK
     Route: 048
  5. ENALAPRIL HCT [Suspect]
     Indication: HYPERTENSION
     Dosage: 20/12.5, DAILY
     Route: 048
     Dates: end: 20130725
  6. ENALAPRIL HCT [Suspect]
     Dosage: UNK
     Route: 048
  7. ACETYLSALICYLIC ACID [Concomitant]
     Indication: PROPHYLAXIS
     Dosage: 100 MG, QD
     Route: 048
  8. METFORMINE [Concomitant]
     Indication: DIABETES MELLITUS
     Dosage: 850 MG, QD
     Route: 048
  9. FENOFIBRATE [Concomitant]
     Indication: DYSLIPIDAEMIA
     Dosage: 145 MG, QD
     Route: 048
  10. OMEPRAZOL ^ACYFABRIK^ [Concomitant]
     Indication: PROPHYLAXIS AGAINST GASTROINTESTINAL ULCER
     Dosage: 20 MG, QD
     Route: 048

REACTIONS (3)
  - Pyrexia [Recovered/Resolved]
  - Renal impairment [Recovered/Resolved]
  - Diarrhoea [Recovered/Resolved]
